FAERS Safety Report 9819580 (Version 1)
Quarter: 2014Q1

REPORT INFORMATION
  Report Type: Spontaneous
  Country: US (occurrence: US)
  Receive Date: 20140115
  Receipt Date: 20140115
  Transmission Date: 20141002
  Serious: Yes (Hospitalization, Other)
  Sender: FDA-Public Use
  Company Number: US-ELI_LILLY_AND_COMPANY-US201401001283

PATIENT
  Sex: Male

DRUGS (2)
  1. HUMALOG LISPRO [Suspect]
     Indication: PRODUCT USED FOR UNKNOWN INDICATION
     Dosage: 80 U, EVERY 6 HRS
     Route: 065
     Dates: start: 2005
  2. HUMULIN NPH [Suspect]
     Indication: PRODUCT USED FOR UNKNOWN INDICATION
     Dosage: 100 U, TID
     Route: 065
     Dates: start: 2005

REACTIONS (4)
  - Renal disorder [Unknown]
  - Cardiac disorder [Unknown]
  - Blood glucose decreased [Unknown]
  - Blood glucose fluctuation [Unknown]
